FAERS Safety Report 6421931-7 (Version None)
Quarter: 2009Q4

REPORT INFORMATION
  Report Type: 
  Country: None (occurrence: None)
  Receive Date: 20091029
  Receipt Date: 20091029
  Transmission Date: 20100525
  Serious: Yes (Hospitalization)
  Sender: FDA-Public Use
  Company Number: None

PATIENT
  Age: 39 Year
  Sex: Female
  Weight: 169.9 kg

DRUGS (1)
  1. MEGESTROL ACETATE CAP [Suspect]
     Indication: PULMONARY EMBOLISM
     Dosage: 20MG DAILY DAY 1-15 PO
     Route: 048
     Dates: end: 20091018

REACTIONS (2)
  - PULMONARY EMBOLISM [None]
  - PYREXIA [None]
